FAERS Safety Report 7125733-8 (Version None)
Quarter: 2010Q4

REPORT INFORMATION
  Report Type: 
  Country: None (occurrence: None)
  Receive Date: 20101129
  Receipt Date: 20101115
  Transmission Date: 20110411
  Serious: Yes (Other)
  Sender: FDA-Public Use
  Company Number: B0677105A

PATIENT
  Sex: Female

DRUGS (1)
  1. NEOTIGASON [Suspect]
     Indication: PSORIASIS
     Dosage: 30MG PER DAY
     Route: 065
     Dates: start: 20100128, end: 20100513

REACTIONS (17)
  - ALOPECIA [None]
  - ARTHRALGIA [None]
  - BACK PAIN [None]
  - CHANGE OF BOWEL HABIT [None]
  - CHEILITIS [None]
  - CONDITION AGGRAVATED [None]
  - DEPRESSED LEVEL OF CONSCIOUSNESS [None]
  - DRUG INEFFECTIVE [None]
  - DRY SKIN [None]
  - FATIGUE [None]
  - LIP DRY [None]
  - MALAISE [None]
  - NASAL DRYNESS [None]
  - ONYCHOCLASIS [None]
  - PAIN [None]
  - RASH PUSTULAR [None]
  - SKIN EXFOLIATION [None]
